FAERS Safety Report 9855342 (Version 3)
Quarter: 2014Q3

REPORT INFORMATION
  Report Type: Spontaneous
  Country: US (occurrence: US)
  Receive Date: 20140130
  Receipt Date: 20140701
  Transmission Date: 20150326
  Serious: Yes (Life-Threatening, Hospitalization, Other)
  Sender: FDA-Public Use
  Company Number: US-BAYER-2014-014289

PATIENT
  Age: 42 Year
  Sex: Female
  Weight: 64.4 kg

DRUGS (5)
  1. XANAX [Concomitant]
     Active Substance: ALPRAZOLAM
     Dosage: 1 MG, AS NEEDED
  2. TORADOL [Concomitant]
     Active Substance: KETOROLAC TROMETHAMINE
     Dosage: 2 MG, UNK
  3. MIRENA [Suspect]
     Active Substance: LEVONORGESTREL
     Dosage: 20 MCG/24HR, CONT
     Route: 015
     Dates: start: 20090625, end: 20130124
  4. ETODOLAC. [Concomitant]
     Active Substance: ETODOLAC
     Dosage: 500 MG, AS NEEDE
  5. HYDROCODONE [Concomitant]
     Active Substance: HYDROCODONE
     Dosage: AS NEEDED

REACTIONS (8)
  - General physical health deterioration [None]
  - Anxiety [None]
  - Emotional distress [None]
  - Embedded device [None]
  - Abdominal pain lower [None]
  - Injury [None]
  - Anhedonia [None]
  - Pain [None]

NARRATIVE: CASE EVENT DATE: 20130124
